FAERS Safety Report 20595596 (Version 1)
Quarter: 2022Q1

REPORT INFORMATION
  Report Type: Spontaneous
  Country: US (occurrence: None)
  Receive Date: 20220314
  Receipt Date: 20220314
  Transmission Date: 20220423
  Serious: Yes (Life-Threatening, Hospitalization, Other)
  Sender: FDA-Public Use
  Company Number: None

PATIENT
  Age: 70 Year
  Sex: Female
  Weight: 126 kg

DRUGS (34)
  1. SURE ANTIPERSPIRANT DEODORANT UNSCENTED [Suspect]
     Active Substance: ALUMINUM CHLOROHYDRATE
     Indication: Hyperhidrosis
     Route: 061
     Dates: start: 20211130, end: 20220102
  2. DEVICE [Concomitant]
     Active Substance: DEVICE
  3. DEVICE [Concomitant]
     Active Substance: DEVICE
  4. OXYGEN CONCENTRATOR [Concomitant]
  5. BREO ELLIPTA [Concomitant]
     Active Substance: FLUTICASONE FUROATE\VILANTEROL TRIFENATATE
  6. VENILON INHALER [Concomitant]
  7. CLOPIDOGREL [Concomitant]
     Active Substance: CLOPIDOGREL BISULFATE
  8. CYCLOBENZAPRINE [Concomitant]
     Active Substance: CYCLOBENZAPRINE
  9. DIPHENHYDRAMINE [Concomitant]
     Active Substance: DIPHENHYDRAMINE
  10. DOCUSSATE [Concomitant]
  11. DULOXETINE [Concomitant]
     Active Substance: DULOXETINE
  12. FUROSEMIDE [Concomitant]
     Active Substance: FUROSEMIDE
  13. GABAPENTIN [Concomitant]
     Active Substance: GABAPENTIN
  14. HYDROXOZINE [Concomitant]
  15. NOVOLOG [Concomitant]
     Active Substance: INSULIN ASPART
  16. LEVIMER [Concomitant]
  17. MICAFUNGIN [Concomitant]
     Active Substance: MICAFUNGIN
  18. NYSTATIN [Concomitant]
     Active Substance: NYSTATIN
  19. FLUTICASONE [Concomitant]
     Active Substance: FLUTICASONE
  20. ALBUTEROL [Concomitant]
     Active Substance: ALBUTEROL
  21. BUDESOMIDE [Concomitant]
  22. ELIQUIS [Concomitant]
     Active Substance: APIXABAN
  23. CALCIUM\VITAMIN D [Concomitant]
     Active Substance: CALCIUM\VITAMIN D
  24. STOOL SOFTNERS [Concomitant]
  25. LANSOPRAZOLE [Concomitant]
     Active Substance: LANSOPRAZOLE
  26. LEVOCITRIZINE [Concomitant]
  27. MAGNESIUM OXIDE [Concomitant]
     Active Substance: MAGNESIUM OXIDE
  28. METFORMIN [Concomitant]
     Active Substance: METFORMIN HYDROCHLORIDE
  29. OXYCODONE [Concomitant]
     Active Substance: OXYCODONE
  30. SIMETHECONE [Concomitant]
  31. SPIRONOLACTONE [Concomitant]
     Active Substance: SPIRONOLACTONE
  32. UNSPECIFIED INGREDIENT [Concomitant]
     Active Substance: UNSPECIFIED INGREDIENT
  33. WHEELCHAIR (WALKER) [Concomitant]
  34. UNSPECIFIED INGREDIENT [Concomitant]
     Active Substance: UNSPECIFIED INGREDIENT

REACTIONS (9)
  - Immune system disorder [None]
  - Fungal infection [None]
  - Skin ulcer [None]
  - Impaired healing [None]
  - Fungal skin infection [None]
  - Pain [None]
  - Burning sensation [None]
  - Systemic mycosis [None]
  - Venous occlusion [None]

NARRATIVE: CASE EVENT DATE: 20220115
